FAERS Safety Report 18260733 (Version 3)
Quarter: 2020Q3

REPORT INFORMATION
  Report Type: Spontaneous
  Country: FR (occurrence: FR)
  Receive Date: 20200914
  Receipt Date: 20200928
  Transmission Date: 20201103
  Serious: Yes (Death, Other)
  Sender: FDA-Public Use
  Company Number: FR-SA-2020SA246791

PATIENT

DRUGS (5)
  1. DUPIXENT [Suspect]
     Active Substance: DUPILUMAB
     Indication: DERMATITIS ATOPIC
     Dosage: UNK
     Dates: start: 201907
  2. TRAMADOL HYDROCHLORIDE. [Suspect]
     Active Substance: TRAMADOL HYDROCHLORIDE
     Dosage: UNK
     Dates: start: 20200217
  3. VENTOLIN [Concomitant]
     Active Substance: ALBUTEROL SULFATE
     Indication: ASTHMA
     Dosage: UNK
  4. DUPIXENT [Suspect]
     Active Substance: DUPILUMAB
     Dosage: 300 MG, QOW
     Dates: start: 20191022, end: 20200208
  5. PROTOPIC [Concomitant]
     Active Substance: TACROLIMUS
     Dosage: 1 UNK, QW (1 TIME PER WEEK.)
     Dates: start: 2017

REACTIONS (15)
  - Loss of consciousness [Fatal]
  - Skeletal injury [Unknown]
  - Headache [Fatal]
  - Eye pain [Fatal]
  - Asthenia [Fatal]
  - Nausea [Fatal]
  - Therapeutic response decreased [Unknown]
  - Peripheral coldness [Fatal]
  - Musculoskeletal stiffness [Fatal]
  - Fall [Unknown]
  - Vomiting [Fatal]
  - Aneurysm [Fatal]
  - Dizziness [Fatal]
  - Hyperhidrosis [Fatal]
  - Dermatitis atopic [Unknown]

NARRATIVE: CASE EVENT DATE: 201909
